FAERS Safety Report 24971214 (Version 1)
Quarter: 2025Q1

REPORT INFORMATION
  Report Type: Report from Study
  Country: US (occurrence: US)
  Receive Date: 20250214
  Receipt Date: 20250214
  Transmission Date: 20250409
  Serious: Yes (Other)
  Sender: ALEXION PHARMACEUTICALS
  Company Number: US-ASTRAZENECA-202502USA010032US

PATIENT

DRUGS (1)
  1. OLAPARIB [Suspect]
     Active Substance: OLAPARIB
     Indication: Breast cancer female
     Dosage: 100 MILLIGRAM, BID

REACTIONS (6)
  - Neoplasm malignant [Unknown]
  - Lymphoma [Unknown]
  - Metastases to bone [Unknown]
  - Ulcer [Unknown]
  - Gastrooesophageal reflux disease [Unknown]
  - Bone pain [Unknown]
